FAERS Safety Report 9296127 (Version 1)
Quarter: 2013Q2

REPORT INFORMATION
  Report Type: Spontaneous
  Country: GB (occurrence: None)
  Receive Date: 20130514
  Receipt Date: 20130514
  Transmission Date: 20140414
  Serious: Yes (Disabling, Other)
  Sender: FDA-Public Use
  Company Number: GER/UKI/13/0029517

PATIENT
  Age: 54 Year
  Sex: Male
  Weight: 83 kg

DRUGS (13)
  1. PIOGLITAZONE (PIOGLITAZONE) [Suspect]
     Indication: PRODUCT USED FOR UNKNOWN INDICATION
  2. ATENOLOL (ATENOLOL) [Suspect]
     Indication: PRODUCT USED FOR UNKNOWN INDICATION
     Route: 048
     Dates: end: 2003
  3. ASPIRIN COATED (ACETYLSALICYLIC ACID) [Concomitant]
  4. BYETTA (EXENATIDE) [Concomitant]
  5. CAPOTEN (CAPTOPRIL) [Concomitant]
  6. COD LIVER [Concomitant]
  7. GLICLAZIDE (GLICLAZIDE) [Concomitant]
  8. IRON (IRON) [Concomitant]
  9. METFORMIN (METFORMIN) [Concomitant]
  10. MULTIVITAMIN PREPARATION (VIGRAN) [Concomitant]
  11. THYROXINE (LEVOTHYROXINE SODIUM) [Concomitant]
  12. VIAGRA (SILDENAFIL CITRATE) [Concomitant]
  13. VITAMIN B12 (CYANOCOBALAMIN) [Concomitant]

REACTIONS (8)
  - Blood glucose abnormal [None]
  - Erectile dysfunction [None]
  - Hand-arm vibration syndrome [None]
  - Lethargy [None]
  - Loss of libido [None]
  - Paraesthesia [None]
  - Anorgasmia [None]
  - Condition aggravated [None]
